FAERS Safety Report 7654631-6 (Version None)
Quarter: 2011Q3

REPORT INFORMATION
  Report Type: 
  Country: None (occurrence: None)
  Receive Date: 20110803
  Receipt Date: 20110725
  Transmission Date: 20111222
  Serious: Yes (Hospitalization, Disabling, Other)
  Sender: FDA-Public Use
  Company Number: US-CELGENEUS-163-21880-11012627

PATIENT
  Sex: Female

DRUGS (1)
  1. REVLIMID [Suspect]
     Indication: MULTIPLE MYELOMA
     Dosage: 15 MILLIGRAM
     Route: 048
     Dates: start: 20101201, end: 20110202

REACTIONS (5)
  - FATIGUE [None]
  - ABSCESS [None]
  - HYPERSOMNIA [None]
  - MULTIPLE MYELOMA [None]
  - OSTEONECROSIS OF JAW [None]
